FAERS Safety Report 8325215-1 (Version None)
Quarter: 2012Q2

REPORT INFORMATION
  Report Type: 
  Country: None (occurrence: None)
  Receive Date: 20120501
  Receipt Date: 20120429
  Transmission Date: 20120825
  Serious: Yes (Death)
  Sender: FDA-Public Use
  Company Number: IL-ROCHE-1023417

PATIENT
  Age: 40 Year
  Sex: Male

DRUGS (1)
  1. ACTEMRA [Suspect]
     Indication: AMYLOIDOSIS
     Route: 042

REACTIONS (3)
  - RENAL FAILURE [None]
  - SEPSIS [None]
  - AMYLOIDOSIS [None]
